FAERS Safety Report 16174968 (Version 1)
Quarter: 2019Q2

REPORT INFORMATION
  Report Type: Spontaneous
  Country: FR (occurrence: FR)
  Receive Date: 20190409
  Receipt Date: 20190409
  Transmission Date: 20190711
  Serious: Yes (Other)
  Sender: FDA-Public Use
  Company Number: FR-PFIZER INC-2019145819

PATIENT
  Age: 23 Year
  Sex: Female

DRUGS (3)
  1. ATARAX [Suspect]
     Active Substance: HYDROXYZINE HYDROCHLORIDE
     Dosage: 20 DF, UNK
     Route: 048
     Dates: start: 20180614
  2. VENLAFAXINE HCL [Suspect]
     Active Substance: VENLAFAXINE HYDROCHLORIDE
     Dosage: 370 MG, UNK
     Route: 048
     Dates: start: 20180614
  3. TRAMADOL BASE [Suspect]
     Active Substance: TRAMADOL
     Dosage: 2 DF, UNK
     Route: 048
     Dates: start: 20180614

REACTIONS (4)
  - Toxicity to various agents [Recovered/Resolved]
  - Tachycardia [Recovered/Resolved]
  - Intentional self-injury [Unknown]
  - Somnolence [Recovered/Resolved]

NARRATIVE: CASE EVENT DATE: 20180614
